FAERS Safety Report 7014279-3 (Version None)
Quarter: 2010Q3

REPORT INFORMATION
  Report Type: 
  Country: None (occurrence: None)
  Receive Date: 20100922
  Receipt Date: 20100913
  Transmission Date: 20110219
  Serious: Yes (Death)
  Sender: FDA-Public Use
  Company Number: 017285

PATIENT
  Age: 43 Year
  Sex: Male
  Weight: 70 kg

DRUGS (3)
  1. KEPPRA [Suspect]
     Indication: POST-TRAUMATIC EPILEPSY
     Dosage: 750 MG BID, 750 MG 2 NIGHTLY PO ORAL
     Route: 048
     Dates: end: 20100508
  2. DEPAKOTE [Suspect]
     Indication: POST-TRAUMATIC EPILEPSY
     Dosage: ORAL
     Route: 048
  3. VARENICLINE [Suspect]
     Indication: SMOKING CESSATION THERAPY
     Dosage: 1 MG QD ORAL
     Route: 048
     Dates: start: 20091101, end: 20100508

REACTIONS (4)
  - CONDITION AGGRAVATED [None]
  - CONVULSION [None]
  - SOMNOLENCE [None]
  - TREATMENT NONCOMPLIANCE [None]
